FAERS Safety Report 8502541-4 (Version None)
Quarter: 2012Q3

REPORT INFORMATION
  Report Type: 
  Country: None (occurrence: None)
  Receive Date: 20120711
  Receipt Date: 20120628
  Transmission Date: 20120928
  Serious: Yes (Other)
  Sender: FDA-Public Use
  Company Number: US-ELI_LILLY_AND_COMPANY-US201207001020

PATIENT
  Sex: Female

DRUGS (6)
  1. TYLENOL                                 /SCH/ [Concomitant]
  2. LEVOTHYROXINE SODIUM [Concomitant]
  3. CYMBALTA [Suspect]
     Indication: DEPRESSION
     Dosage: 30 MG, QD
  4. CYMBALTA [Suspect]
     Dosage: 60 MG, QD
  5. AMLODIPINE BESYLATE [Concomitant]
  6. CYMBALTA [Suspect]
     Dosage: 60 MG, EACH EVENING

REACTIONS (7)
  - NECK SURGERY [None]
  - DIZZINESS [None]
  - BALANCE DISORDER [None]
  - DRUG WITHDRAWAL SYNDROME [None]
  - INTENTIONAL DRUG MISUSE [None]
  - TINNITUS [None]
  - FEELING ABNORMAL [None]
